FAERS Safety Report 4600226-8 (Version None)
Quarter: 2005Q1

REPORT INFORMATION
  Report Type: 
  Country: None (occurrence: None)
  Receive Date: 20050303
  Receipt Date: 20050303
  Transmission Date: 20050727
  Serious: No
  Sender: FDA-Public Use
  Company Number: None

PATIENT
  Age: 4 Year
  Sex: Female
  Weight: 20.4119 kg

DRUGS (2)
  1. AUGMENTIN ES-600 [Suspect]
     Indication: EAR INFECTION
     Dosage: 1 TEASPONFUL  BID   ORAL
     Route: 048
     Dates: start: 20050301, end: 20050302
  2. MOTRIN [Concomitant]

REACTIONS (4)
  - ANGIONEUROTIC OEDEMA [None]
  - FACE OEDEMA [None]
  - RASH PRURITIC [None]
  - SWELLING [None]
